FAERS Safety Report 11325241 (Version 3)
Quarter: 2016Q2

REPORT INFORMATION
  Report Type: Spontaneous
  Country: GB (occurrence: GB)
  Receive Date: 20150730
  Receipt Date: 20160617
  Transmission Date: 20160815
  Serious: Yes (Death, Hospitalization, Disabling)
  Sender: FDA-Public Use
  Company Number: GB-FRESENIUS KABI-FK201502073

PATIENT
  Age: 46 Year
  Sex: Male

DRUGS (6)
  1. GRANULOKINE [Concomitant]
     Active Substance: FILGRASTIM
     Dates: start: 201504
  2. ZAPONEX [Suspect]
     Active Substance: CLOZAPINE
     Route: 048
     Dates: start: 20150421, end: 20150422
  3. CISPLATIN (MANUFACTURER UNKNOWN) [Suspect]
     Active Substance: CISPLATIN
     Indication: LARYNGEAL CANCER
     Route: 065
     Dates: start: 201503, end: 201504
  4. ZAPONEX [Suspect]
     Active Substance: CLOZAPINE
     Indication: PRODUCT USED FOR UNKNOWN INDICATION
     Route: 048
     Dates: start: 20150418, end: 20150420
  5. ZAPONEX [Suspect]
     Active Substance: CLOZAPINE
     Route: 048
     Dates: start: 20081124, end: 20150417
  6. ZAPONEX [Suspect]
     Active Substance: CLOZAPINE
     Dates: end: 20160320

REACTIONS (13)
  - Drug effect incomplete [Not Recovered/Not Resolved]
  - Neutropenia [Recovered/Resolved]
  - Neutrophil count decreased [Recovered/Resolved]
  - Neutrophil count increased [Not Recovered/Not Resolved]
  - Product use issue [Not Recovered/Not Resolved]
  - White blood cell count increased [Not Recovered/Not Resolved]
  - Platelet count increased [Recovered/Resolved]
  - Leukopenia [Recovered/Resolved]
  - Laryngeal cancer stage IV [Fatal]
  - Haemoglobin decreased [Unknown]
  - Lymphopenia [Not Recovered/Not Resolved]
  - Platelet count decreased [Not Recovered/Not Resolved]
  - White blood cell count decreased [Recovered/Resolved]

NARRATIVE: CASE EVENT DATE: 20141223
